FAERS Safety Report 16227615 (Version 1)
Quarter: 2019Q2

REPORT INFORMATION
  Report Type: Spontaneous
  Country: US (occurrence: US)
  Receive Date: 20190422
  Receipt Date: 20190422
  Transmission Date: 20190711
  Serious: No
  Sender: FDA-Public Use
  Company Number: None

PATIENT
  Age: 39 Year
  Sex: Female
  Weight: 54 kg

DRUGS (1)
  1. HYDROCODONE-ACETAMINOPHEN 10-325 TB SUBSTITUTED FOR: NORCO 10-325 [Suspect]
     Active Substance: ACETAMINOPHEN\HYDROCODONE
     Indication: MULTIPLE SCLEROSIS
     Dosage: ?          QUANTITY:1 TABLET(S);?
     Route: 048
     Dates: start: 20190419, end: 20190422

REACTIONS (3)
  - Product substitution issue [None]
  - Drug ineffective [None]
  - Nervous system disorder [None]

NARRATIVE: CASE EVENT DATE: 20190419
